FAERS Safety Report 8152213-3 (Version None)
Quarter: 2012Q1

REPORT INFORMATION
  Report Type: 
  Country: None (occurrence: None)
  Receive Date: 20120215
  Receipt Date: 20120215
  Transmission Date: 20120608
  Serious: Yes (Other)
  Sender: FDA-Public Use
  Company Number: None

PATIENT
  Sex: Female

DRUGS (1)
  1. AVONEX [Suspect]
     Dosage: 30MCG QW IM
     Route: 030
     Dates: start: 20100527

REACTIONS (5)
  - CHEST DISCOMFORT [None]
  - NAUSEA [None]
  - MUSCULAR WEAKNESS [None]
  - HYPERHIDROSIS [None]
  - CHILLS [None]
